FAERS Safety Report 17101972 (Version 1)
Quarter: 2019Q4

REPORT INFORMATION
  Report Type: Spontaneous
  Country: AU (occurrence: AU)
  Receive Date: 20191202
  Receipt Date: 20191202
  Transmission Date: 20200122
  Serious: Yes (Hospitalization, Other)
  Sender: FDA-Public Use
  Company Number: AU-009507513-1911AUS010914

PATIENT
  Sex: Female

DRUGS (4)
  1. CELESTONE CHRONODOSE [Suspect]
     Active Substance: BETAMETHASONE ACETATE\BETAMETHASONE SODIUM PHOSPHATE
     Indication: PAIN
     Dosage: UNK
     Route: 008
     Dates: start: 20191120, end: 20191120
  2. PALEXIA [Concomitant]
     Active Substance: TAPENTADOL HYDROCHLORIDE
  3. NAPROXEN. [Concomitant]
     Active Substance: NAPROXEN
  4. PANADOL [Concomitant]
     Active Substance: ACETAMINOPHEN

REACTIONS (4)
  - Migraine [Not Recovered/Not Resolved]
  - Therapeutic response shortened [Unknown]
  - Pain [Unknown]
  - Cerebrospinal fluid leakage [Not Recovered/Not Resolved]

NARRATIVE: CASE EVENT DATE: 201911
